FAERS Safety Report 8884928 (Version 2)
Quarter: 2012Q4

REPORT INFORMATION
  Report Type: 
  Country: US (occurrence: US)
  Receive Date: 20121102
  Receipt Date: 20121129
  Transmission Date: 20130627
  Serious: No
  Sender: FDA-Public Use
  Company Number: US-PFIZER INC-2012274120

PATIENT
  Age: 48 Year
  Sex: Female
  Weight: 65.76 kg

DRUGS (4)
  1. LYRICA [Suspect]
     Indication: FIBROMYALGIA
     Dosage: 150 mg, 2x/day
     Route: 048
     Dates: start: 2011, end: 2011
  2. LYRICA [Suspect]
     Dosage: 150 mg, 3x/day (1 tab)
     Route: 048
     Dates: start: 2011
  3. ULTRAM [Concomitant]
     Dosage: UNK
  4. VICODIN [Concomitant]
     Dosage: UNK

REACTIONS (3)
  - Malaise [Not Recovered/Not Resolved]
  - Impaired work ability [Unknown]
  - Drug ineffective [Unknown]
